FAERS Safety Report 4784390-6 (Version None)
Quarter: 2005Q3

REPORT INFORMATION
  Report Type: 
  Country: None (occurrence: None)
  Receive Date: 20050928
  Receipt Date: 20050915
  Transmission Date: 20060218
  Serious: Yes (Other)
  Sender: FDA-Public Use
  Company Number: 2005130485

PATIENT
  Sex: Female
  Weight: 63.5036 kg

DRUGS (5)
  1. XALATAN [Suspect]
     Indication: INTRAOCULAR PRESSURE INCREASED
     Dosage: 1.5 UG (1.5 MCG, EVERY DAY), OPHTHALMIC
     Route: 047
     Dates: start: 20040101
  2. MINIPRESS [Concomitant]
  3. INDAPAMIDE [Concomitant]
  4. LIPITOR [Concomitant]
  5. POTASSIUM (POTASSIUM) [Concomitant]

REACTIONS (4)
  - EYE IRRITATION [None]
  - EYE PAIN [None]
  - OCULAR HYPERAEMIA [None]
  - POOR QUALITY DRUG ADMINISTERED [None]
